FAERS Safety Report 5638159-0 (Version None)
Quarter: 2008Q1

REPORT INFORMATION
  Report Type: 
  Country: None (occurrence: None)
  Receive Date: 20080226
  Receipt Date: 20080218
  Transmission Date: 20080703
  Serious: Yes (Other)
  Sender: FDA-Public Use
  Company Number: BR-ELI_LILLY_AND_COMPANY-BR200802004059

PATIENT
  Sex: Male

DRUGS (2)
  1. CIALIS [Suspect]
     Dosage: UNK, UNKNOWN
     Route: 048
  2. ANGIPRESS [Concomitant]
     Indication: ARRHYTHMIA SUPRAVENTRICULAR
     Dosage: 125 MG, DAILY (1/D)
     Route: 065

REACTIONS (3)
  - ARRHYTHMIA [None]
  - HEART RATE DECREASED [None]
  - SYNCOPE [None]
